FAERS Safety Report 7664922-0 (Version None)
Quarter: 2011Q3

REPORT INFORMATION
  Report Type: 
  Country: None (occurrence: None)
  Receive Date: 20110806
  Receipt Date: 20110111
  Transmission Date: 20111222
  Serious: No
  Sender: FDA-Public Use
  Company Number: US-ABBOTT-10P-163-0648003-00

PATIENT
  Sex: Female

DRUGS (2)
  1. NIASPAN [Suspect]
     Indication: PRODUCT USED FOR UNKNOWN INDICATION
  2. NIASPAN [Suspect]

REACTIONS (5)
  - GASTRITIS [None]
  - VOMITING [None]
  - ABDOMINAL DISCOMFORT [None]
  - MALAISE [None]
  - ERUCTATION [None]
